FAERS Safety Report 20691404 (Version 1)
Quarter: 2022Q2

REPORT INFORMATION
  Report Type: Spontaneous
  Country: US (occurrence: None)
  Receive Date: 20220406
  Receipt Date: 20220406
  Transmission Date: 20220721
  Serious: No
  Sender: FDA-Public Use
  Company Number: None

PATIENT
  Age: 88 Year
  Sex: Female

DRUGS (1)
  1. TYMLOS [Suspect]
     Active Substance: ABALOPARATIDE
     Indication: Senile osteoporosis
     Dosage: OTHER STRENGTH : 3120MCG/1.5ML;?FREQUENCY : DAILY;?INJECT 80MCG SUBCUTANEOUSLY DAILY IN THE ABDOMEN
     Route: 058
     Dates: start: 202111

REACTIONS (1)
  - Hip surgery [None]
